FAERS Safety Report 20320204 (Version 1)
Quarter: 2022Q1

REPORT INFORMATION
  Report Type: Spontaneous
  Country: US (occurrence: US)
  Receive Date: 20220111
  Receipt Date: 20220111
  Transmission Date: 20220423
  Serious: Yes (Hospitalization, Other)
  Sender: FDA-Public Use
  Company Number: US-ALKEM LABORATORIES LIMITED-US-ALKEM-2021-08453

PATIENT
  Age: 38 Year
  Sex: Male

DRUGS (1)
  1. PREGABALIN [Suspect]
     Active Substance: PREGABALIN
     Indication: Product used for unknown indication
     Dosage: 8.4 GRAM, QD
     Route: 065

REACTIONS (5)
  - Hallucination, auditory [Unknown]
  - Suicidal ideation [Unknown]
  - Tachycardia [Unknown]
  - Hyperhidrosis [Unknown]
  - Anxiety [Unknown]
